FAERS Safety Report 4435664-X (Version None)
Quarter: 2004Q3

REPORT INFORMATION
  Report Type: 
  Country: None (occurrence: None)
  Receive Date: 20040726
  Receipt Date: 20040412
  Transmission Date: 20050211
  Serious: No
  Sender: FDA-Public Use
  Company Number: USA040464708

PATIENT
  Age: 48 Year
  Sex: Female

DRUGS (2)
  1. FORTEO [Suspect]
     Indication: OSTEOPOROSIS
     Dates: start: 20031229
  2. ATENOLOL [Concomitant]

REACTIONS (5)
  - HOT FLUSH [None]
  - MARFAN'S SYNDROME [None]
  - MUSCLE TIGHTNESS [None]
  - PAIN [None]
  - RENAL PAIN [None]
